FAERS Safety Report 12898286 (Version 1)
Quarter: 2016Q4

REPORT INFORMATION
  Report Type: Report from Study
  Country: US (occurrence: US)
  Receive Date: 20161031
  Receipt Date: 20161031
  Transmission Date: 20170207
  Serious: Yes (Hospitalization)
  Sender: FDA-Public Use
  Company Number: US-B. BRAUN MEDICAL INC.-1059105

PATIENT
  Age: 22 Year
  Sex: Male

DRUGS (7)
  1. METRONIDAZOLE. [Suspect]
     Active Substance: METRONIDAZOLE
     Indication: SINUSITIS
     Route: 048
  2. VANCOMYCIN [Concomitant]
     Active Substance: VANCOMYCIN
  3. METRONIDAZOLE. [Suspect]
     Active Substance: METRONIDAZOLE
     Indication: CENTRAL NERVOUS SYSTEM LESION
     Route: 048
  4. LEVETIRACETAM. [Concomitant]
     Active Substance: LEVETIRACETAM
     Route: 048
  5. METRONIDAZOLE. [Suspect]
     Active Substance: METRONIDAZOLE
     Indication: BACTERIAL INFECTION
     Route: 048
  6. CEFTRIAXONE. [Concomitant]
     Active Substance: CEFTRIAXONE
     Route: 042
  7. LINEZOLID. [Concomitant]
     Active Substance: LINEZOLID
     Route: 048

REACTIONS (7)
  - Toxic encephalopathy [None]
  - Encephalitis [None]
  - Hypoacusis [None]
  - Encephalopathy [Unknown]
  - Gait disturbance [None]
  - General physical health deterioration [None]
  - Neuropathy peripheral [None]
